FAERS Safety Report 16915153 (Version 1)
Quarter: 2019Q4

REPORT INFORMATION
  Report Type: Spontaneous
  Country: FR (occurrence: FR)
  Receive Date: 20191014
  Receipt Date: 20191014
  Transmission Date: 20200122
  Serious: Yes (Other)
  Sender: FDA-Public Use
  Company Number: FR-MALLINCKRODT-T201906814

PATIENT
  Age: 62 Year
  Sex: Male

DRUGS (1)
  1. UVADEX [Suspect]
     Active Substance: METHOXSALEN
     Indication: ACUTE GRAFT VERSUS HOST DISEASE IN SKIN
     Dosage: UNK, EXTRACORPOREAL
     Route: 050

REACTIONS (4)
  - Impaired healing [Unknown]
  - Haematoma [Unknown]
  - Haemorrhage [Unknown]
  - Product use in unapproved indication [Unknown]
